FAERS Safety Report 22398119 (Version 1)
Quarter: 2023Q2

REPORT INFORMATION
  Report Type: Spontaneous
  Country: CN (occurrence: CN)
  Receive Date: 20230602
  Receipt Date: 20230602
  Transmission Date: 20230722
  Serious: Yes (Other)
  Sender: FDA-Public Use
  Company Number: CN-SUN PHARMACEUTICAL INDUSTRIES LTD-2023R1-392430

PATIENT
  Age: 73 Year
  Sex: Male

DRUGS (1)
  1. KETOROLAC TROMETHAMINE [Suspect]
     Active Substance: KETOROLAC TROMETHAMINE
     Indication: Gouty arthritis
     Dosage: UNK 60 MG DILUTED IN 0.9% NACL250ML ONCE DAILY
     Route: 042

REACTIONS (2)
  - Shock haemorrhagic [Recovered/Resolved]
  - Peptic ulcer [Recovered/Resolved]
